FAERS Safety Report 10402993 (Version 1)
Quarter: 2014Q3

REPORT INFORMATION
  Report Type: Spontaneous
  Country: IN (occurrence: IN)
  Receive Date: 20140822
  Receipt Date: 20140822
  Transmission Date: 20150326
  Serious: Yes (Hospitalization)
  Sender: FDA-Public Use
  Company Number: PHHY2014IN101071

PATIENT
  Age: 33 Year
  Sex: Male

DRUGS (1)
  1. METHYLPREDNISOLONE [Suspect]
     Active Substance: METHYLPREDNISOLONE
     Indication: EOSINOPHILIC PNEUMONIA ACUTE
     Dosage: 40 MG, TID INFUSION OVER 30 MINUTES EACH
     Route: 042

REACTIONS (2)
  - Bradycardia [Recovered/Resolved]
  - Sinus bradycardia [Recovered/Resolved]
